FAERS Safety Report 5564959-1 (Version None)
Quarter: 2007Q4

REPORT INFORMATION
  Report Type: 
  Country: None (occurrence: None)
  Receive Date: 20071218
  Receipt Date: 20071214
  Transmission Date: 20080405
  Serious: Yes (Other)
  Sender: FDA-Public Use
  Company Number: B0499744A

PATIENT
  Age: 87 Year
  Sex: Female

DRUGS (3)
  1. PAXIL [Suspect]
     Indication: DRUG USE FOR UNKNOWN INDICATION
     Dosage: 10MG PER DAY
     Route: 048
  2. MYSLEE [Concomitant]
     Route: 048
  3. ARICEPT [Concomitant]
     Route: 048

REACTIONS (2)
  - ACCIDENTAL EXPOSURE [None]
  - ELECTROCARDIOGRAM QT PROLONGED [None]
